FAERS Safety Report 5281256-2 (Version None)
Quarter: 2007Q1

REPORT INFORMATION
  Report Type: 
  Country: None (occurrence: None)
  Receive Date: 20070326
  Receipt Date: 20070314
  Transmission Date: 20070707
  Serious: Yes (Life-Threatening, Other)
  Sender: FDA-Public Use
  Company Number: 2007SP004952

PATIENT
  Age: 42 Year
  Sex: Female
  Weight: 45 kg

DRUGS (7)
  1. TEMODAL [Suspect]
     Indication: BRAIN STEM GLIOMA
     Dosage: 120 MG; QD; PO
     Route: 048
     Dates: start: 20070206
  2. PHENOBARBITAL TAB [Suspect]
     Indication: DRUG USE FOR UNKNOWN INDICATION
     Dosage: 100 MG; PO
     Route: 048
     Dates: start: 20070115
  3. BACTRIM [Suspect]
     Indication: DRUG USE FOR UNKNOWN INDICATION
     Dosage: 2 GM; PO
     Route: 048
     Dates: start: 20070210
  4. LEVOFLOXACIN [Suspect]
     Indication: DRUG USE FOR UNKNOWN INDICATION
     Dosage: 300 MG PO
     Route: 048
     Dates: start: 20060206
  5. RADIOTHERAPY [Concomitant]
  6. DECADRON [Concomitant]
  7. GASTER D [Concomitant]

REACTIONS (1)
  - STEVENS-JOHNSON SYNDROME [None]
